FAERS Safety Report 9323546 (Version 1)
Quarter: 2013Q2

REPORT INFORMATION
  Report Type: Spontaneous
  Country: ES (occurrence: ES)
  Receive Date: 20130603
  Receipt Date: 20130603
  Transmission Date: 20140414
  Serious: Yes (Other)
  Sender: FDA-Public Use
  Company Number: ES-009507513-1305ESP015383

PATIENT
  Age: 85 Year
  Sex: Female

DRUGS (1)
  1. CELESTONE CRONODOSE [Suspect]
     Indication: BACK PAIN
     Dosage: UNK
     Route: 030
     Dates: start: 20110323, end: 20110323

REACTIONS (3)
  - Respiratory distress [Recovered/Resolved]
  - Pruritus [Recovered/Resolved]
  - Tongue pruritus [None]
